FAERS Safety Report 9724351 (Version 2)
Quarter: 2013Q4

REPORT INFORMATION
  Report Type: Spontaneous
  Country: JP (occurrence: JP)
  Receive Date: 20131202
  Receipt Date: 20131202
  Transmission Date: 20140711
  Serious: Yes (Other)
  Sender: FDA-Public Use
  Company Number: JP-BRISTOL-MYERS SQUIBB COMPANY-19493345

PATIENT
  Sex: 0

DRUGS (1)
  1. ABILIFY TABS [Suspect]
     Route: 048

REACTIONS (2)
  - Brain neoplasm [Unknown]
  - Masked facies [Unknown]
